FAERS Safety Report 8096746-7 (Version None)
Quarter: 2012Q1

REPORT INFORMATION
  Report Type: 
  Country: None (occurrence: None)
  Receive Date: 20120129
  Receipt Date: 20111109
  Transmission Date: 20120608
  Serious: No
  Sender: FDA-Public Use
  Company Number: US-ABBOTT-11P-163-0859055-00

PATIENT
  Age: 51 Year
  Sex: Female

DRUGS (19)
  1. ARMODAFINIL [Concomitant]
     Indication: PRODUCT USED FOR UNKNOWN INDICATION
  2. PERCOCET [Concomitant]
     Indication: PAIN
     Dosage: 5/325 MG - EVERY 4 HOURS
  3. METFORMIN HCL [Concomitant]
     Indication: GLUCOSE TOLERANCE IMPAIRED
  4. LASIX [Concomitant]
     Indication: DIURETIC THERAPY
  5. HUMIRA [Suspect]
     Indication: RHEUMATOID ARTHRITIS
     Dates: start: 20110916
  6. NAPROXEN [Concomitant]
     Indication: PRODUCT USED FOR UNKNOWN INDICATION
  7. TRAZODONE HCL [Concomitant]
     Indication: INSOMNIA
     Dosage: AT BEDTIME
  8. HYDROXYCHLOROQUINE SULFATE [Concomitant]
     Indication: RHEUMATOID ARTHRITIS
  9. UNKNOWN MEDICATION [Concomitant]
     Indication: ASTHMA
  10. ISONIAZID [Concomitant]
     Indication: EXPOSURE TO COMMUNICABLE DISEASE
  11. IBUPROFEN [Concomitant]
     Indication: PAIN
  12. OXYCONTIN [Concomitant]
     Indication: PAIN
     Dosage: BID-TID
  13. OXYCODONE HCL [Concomitant]
     Indication: PRODUCT USED FOR UNKNOWN INDICATION
  14. MOTRIN [Concomitant]
     Indication: PRODUCT USED FOR UNKNOWN INDICATION
  15. HUMIRA [Suspect]
     Indication: RHEUMATOID ARTHRITIS
     Dates: start: 20111011
  16. FLUOXETINE [Concomitant]
     Indication: DEPRESSION
  17. ARAVA [Concomitant]
     Indication: RHEUMATOID ARTHRITIS
  18. GABAPENTIN [Concomitant]
     Indication: NERVOUS SYSTEM DISORDER
  19. NEXIUM [Concomitant]
     Indication: DYSPEPSIA

REACTIONS (4)
  - INJECTION SITE PAIN [None]
  - MUSCULOSKELETAL STIFFNESS [None]
  - INJECTION SITE PAPULE [None]
  - PAIN [None]
